FAERS Safety Report 5279375-X (Version None)
Quarter: 2007Q1

REPORT INFORMATION
  Report Type: 
  Country: None (occurrence: None)
  Receive Date: 20070322
  Receipt Date: 20070312
  Transmission Date: 20070707
  Serious: Yes (Other)
  Sender: FDA-Public Use
  Company Number: 100#08#2007-00869

PATIENT
  Age: 50 Year
  Sex: Male

DRUGS (9)
  1. OMEPRAZOLE [Suspect]
  2. SERTRALINE [Suspect]
  3. METOPROLOL SUCCINATE [Suspect]
     Dosage: DOSAGE INCREASED)
  4. MEPIVACAINE HCL [Suspect]
     Indication: NERVE BLOCK
     Dosage: 1.5% MEPIVACAINE 45ML PLUS TETRACAINE WITH EPINEPHRINE UNKNOWN
  5. NIFEDIPINE [Suspect]
  6. AMITRIPTLINE HCL [Suspect]
  7. CYCLOBENZAPRINE HCL [Suspect]
  8. TETRACAINE (TETRACAINE) (TETRACAINE) [Concomitant]
  9. EPINEPHRINE (EPINEPHRINE) (EPINEPHRINE) [Concomitant]

REACTIONS (5)
  - ATRIOVENTRICULAR BLOCK [None]
  - BRADYCARDIA [None]
  - CARDIAC ARREST [None]
  - DRUG INTERACTION [None]
  - HYPOTENSION [None]
